FAERS Safety Report 23431296 (Version 1)
Quarter: 2024Q1

REPORT INFORMATION
  Report Type: Spontaneous
  Country: CN (occurrence: CN)
  Receive Date: 20240123
  Receipt Date: 20240123
  Transmission Date: 20240409
  Serious: Yes (Other)
  Sender: FDA-Public Use
  Company Number: None

PATIENT
  Age: 57 Year
  Sex: Male
  Weight: 64.8 kg

DRUGS (9)
  1. IFOSFAMIDE [Suspect]
     Active Substance: IFOSFAMIDE
     Indication: Retroperitoneal neoplasm
     Dosage: 2 G, ONE TIME IN ONE DAY, D1-5, DILUTED WITH 500 ML OF 0.9 % SODIUM CHLORIDE, 6 CYCLE
     Route: 041
     Dates: start: 20230928, end: 20231002
  2. IFOSFAMIDE [Suspect]
     Active Substance: IFOSFAMIDE
     Indication: Chemotherapy
  3. DEXTROSE [Suspect]
     Active Substance: DEXTROSE\DEXTROSE MONOHYDRATE
     Indication: Medication dilution
     Dosage: 250 ML, D1, USED TO DILUTE 20 MG OF DOXORUBICIN HYDROCHLORIDE, 6 CYCLE
     Route: 041
     Dates: start: 20230928, end: 20230928
  4. DEXTROSE [Suspect]
     Active Substance: DEXTROSE\DEXTROSE MONOHYDRATE
     Dosage: 250 ML, D2, USED TO DILUTE 40 MG OF DOXORUBICIN HYDROCHLORIDE, 6 CYCLE
     Route: 041
     Dates: start: 20230929, end: 20230929
  5. SODIUM CHLORIDE [Suspect]
     Active Substance: SODIUM CHLORIDE
     Indication: Chemotherapy
     Dosage: 500 ML, ONE TIME IN ONE DAY, D1-5, USED TO DILUTE 2 G OF IFOSFAMIDE, 6 CYCLE
     Route: 041
     Dates: start: 20230928, end: 20231002
  6. SODIUM CHLORIDE [Suspect]
     Active Substance: SODIUM CHLORIDE
     Indication: Medication dilution
     Dosage: 100 ML, D1, USED TO DILUTE 240 MG OF TORIPALIMAB, 6 CYCLE
     Route: 041
     Dates: start: 20230928, end: 20230928
  7. DOXORUBICIN HYDROCHLORIDE [Suspect]
     Active Substance: DOXORUBICIN HYDROCHLORIDE
     Indication: Retroperitoneal neoplasm
     Dosage: 20 MG, D1, DILUTED WITH 250 ML OF 5 % GLUCOSE, 6 CYCLE
     Route: 041
     Dates: start: 20230928, end: 20230928
  8. DOXORUBICIN HYDROCHLORIDE [Suspect]
     Active Substance: DOXORUBICIN HYDROCHLORIDE
     Dosage: 40 MG, D2, DILUTED WITH 250 ML OF 5 % GLUCOSE, 6 CYCLE
     Route: 041
     Dates: start: 20230929, end: 20230929
  9. TORIPALIMAB [Suspect]
     Active Substance: TORIPALIMAB
     Indication: Retroperitoneal neoplasm
     Dosage: 240 MG, D1, DILUTED WITH 100 ML OF 0.9 % SODIUM CHLORIDE, 6 CYCLE
     Route: 041
     Dates: start: 20230928, end: 20230928

REACTIONS (2)
  - Myelosuppression [Recovering/Resolving]
  - Platelet count decreased [Unknown]

NARRATIVE: CASE EVENT DATE: 20230930
